FAERS Safety Report 18363660 (Version 1)
Quarter: 2020Q4

REPORT INFORMATION
  Report Type: Spontaneous
  Country: PT (occurrence: PT)
  Receive Date: 20201009
  Receipt Date: 20201009
  Transmission Date: 20210114
  Serious: Yes (Hospitalization, Other)
  Sender: FDA-Public Use
  Company Number: PT-AUROBINDO-AUR-APL-2020-051043

PATIENT
  Age: 45 Year
  Sex: Female

DRUGS (23)
  1. LEVETIRACETAM. [Suspect]
     Active Substance: LEVETIRACETAM
     Dosage: 4000 MILLIGRAM PER DAY
     Route: 065
     Dates: start: 2011
  2. CLOBAZAM. [Concomitant]
     Active Substance: CLOBAZAM
     Dosage: 40 MILLIGRAM PER DAY
     Route: 065
     Dates: start: 2010
  3. CARBAMAZEPINE. [Concomitant]
     Active Substance: CARBAMAZEPINE
     Dosage: 1800 MILLIGRAM PER DAY
     Route: 065
     Dates: start: 2012
  4. ZOTEPINE [Concomitant]
     Active Substance: ZOTEPINE
     Indication: PRODUCT USED FOR UNKNOWN INDICATION
     Dosage: UNK
     Route: 065
  5. LEVETIRACETAM. [Suspect]
     Active Substance: LEVETIRACETAM
     Indication: SEIZURE
     Dosage: 1000 MILLIGRAM PER DAY
     Route: 065
     Dates: start: 2007
  6. CLOBAZAM. [Concomitant]
     Active Substance: CLOBAZAM
     Dosage: 40 MILLIGRAM PER DAY
     Route: 065
     Dates: start: 2012
  7. CLOBAZAM. [Concomitant]
     Active Substance: CLOBAZAM
     Dosage: 40 MILLIGRAM PER DAY
     Route: 065
     Dates: start: 2015
  8. CARBAMAZEPINE. [Concomitant]
     Active Substance: CARBAMAZEPINE
     Dosage: 1800 MILLIGRAM PER DAY
     Route: 065
     Dates: start: 2011
  9. LEVETIRACETAM. [Suspect]
     Active Substance: LEVETIRACETAM
     Dosage: 4000 MILLIGRAM PER DAY
     Route: 065
     Dates: start: 2009
  10. LEVETIRACETAM. [Suspect]
     Active Substance: LEVETIRACETAM
     Dosage: 4000 MILLIGRAM PER DAY
     Route: 065
     Dates: start: 2012
  11. CLONAZEPAM. [Concomitant]
     Active Substance: CLONAZEPAM
     Dosage: 4 MILLIGRAM PER DAY
     Route: 065
     Dates: start: 2015
  12. LEVETIRACETAM. [Suspect]
     Active Substance: LEVETIRACETAM
     Dosage: 4000 MILLIGRAM PER DAY
     Route: 065
     Dates: start: 2010
  13. CLOBAZAM. [Concomitant]
     Active Substance: CLOBAZAM
     Dosage: 20 MILLIGRAM PER DAY
     Route: 065
     Dates: start: 2009
  14. CLONAZEPAM. [Concomitant]
     Active Substance: CLONAZEPAM
     Indication: SEIZURE
     Dosage: 4 MILLIGRAM PER DAY
     Route: 065
     Dates: start: 2012
  15. CARBAMAZEPINE. [Concomitant]
     Active Substance: CARBAMAZEPINE
     Dosage: 1200 MILLIGRAM PER DAY
     Route: 065
     Dates: start: 2015
  16. CARBAMAZEPINE. [Concomitant]
     Active Substance: CARBAMAZEPINE
     Indication: SEIZURE
     Dosage: 1200 MILLIGRAM PER DAY
     Route: 065
     Dates: start: 2007
  17. RISPERIDONE. [Concomitant]
     Active Substance: RISPERIDONE
     Dosage: 6 MILLIGRAM PER DAY
     Route: 065
  18. LEVETIRACETAM. [Suspect]
     Active Substance: LEVETIRACETAM
     Dosage: 4000 MILLIGRAM PER DAY
     Route: 065
     Dates: start: 2015
  19. CLOBAZAM. [Concomitant]
     Active Substance: CLOBAZAM
     Indication: SEIZURE
     Dosage: 20 MILLIGRAM PER DAY
     Route: 065
     Dates: start: 2007
  20. CLOBAZAM. [Concomitant]
     Active Substance: CLOBAZAM
     Dosage: 40 MILLIGRAM PER DAY
     Route: 065
     Dates: start: 2011
  21. CARBAMAZEPINE. [Concomitant]
     Active Substance: CARBAMAZEPINE
     Dosage: 1200 MILLIGRAM PER DAY
     Route: 065
     Dates: start: 2009
  22. CARBAMAZEPINE. [Concomitant]
     Active Substance: CARBAMAZEPINE
     Dosage: 1200 MILLIGRAM PER DAY
     Route: 065
     Dates: start: 2010
  23. RISPERIDONE. [Concomitant]
     Active Substance: RISPERIDONE
     Indication: PRODUCT USED FOR UNKNOWN INDICATION
     Dosage: 50 MILLIGRAM PER MILLILITRE
     Route: 065

REACTIONS (4)
  - Epilepsy [Unknown]
  - Prescribed overdose [Unknown]
  - Drug ineffective [Unknown]
  - Schizophrenia [Recovered/Resolved]

NARRATIVE: CASE EVENT DATE: 2009
